FAERS Safety Report 12199968 (Version 1)
Quarter: 2016Q1

REPORT INFORMATION
  Report Type: Other
  Country: DE (occurrence: DE)
  Receive Date: 20160322
  Receipt Date: 20160322
  Transmission Date: 20160526
  Serious: Yes (Hospitalization)
  Sender: FDA-Public Use
  Company Number: DE-MYLANLABS-2016M1011494

PATIENT

DRUGS (3)
  1. CLOZAPINE. [Suspect]
     Active Substance: CLOZAPINE
     Dosage: 200 MG, TOTAL (DAILY DOSE: 200 MG MILLGRAM(S) EVERY TOTAL)
     Route: 048
     Dates: start: 20160301
  2. LORAZEPAM. [Suspect]
     Active Substance: LORAZEPAM
     Dosage: 2 MG, TOTAL (DAILY DOSE: 2 MG MILLGRAM(S) EVERY TOTAL)
     Route: 048
     Dates: start: 20160301
  3. HALOPERIDOL. [Suspect]
     Active Substance: HALOPERIDOL
     Dosage: 4 MG, TOTAL (DAILY DOSE: 4 MG MILLGRAM(S) EVERY TOTAL)
     Route: 048
     Dates: start: 20160301

REACTIONS (4)
  - Salivary hypersecretion [Recovered/Resolved]
  - Somnolence [Recovered/Resolved]
  - Sopor [Recovered/Resolved]
  - Drug dispensed to wrong patient [Recovered/Resolved]

NARRATIVE: CASE EVENT DATE: 20160301
